FAERS Safety Report 9669622 (Version 2)
Quarter: 2014Q1

REPORT INFORMATION
  Report Type: Spontaneous
  Country: US (occurrence: US)
  Receive Date: 20131105
  Receipt Date: 20140116
  Transmission Date: 20141002
  Serious: Yes (Other)
  Sender: FDA-Public Use
  Company Number: US-TEVA-441640USA

PATIENT
  Age: 38 Year
  Sex: Female
  Weight: 64.92 kg

DRUGS (2)
  1. PARAGARD 380A [Suspect]
     Indication: CONTRACEPTION
     Route: 015
     Dates: start: 20131003, end: 20131025
  2. LEVOTHYROXINE [Concomitant]
     Indication: HYPOTHYROIDISM

REACTIONS (3)
  - Vaginal haemorrhage [Unknown]
  - Device expulsion [Recovered/Resolved]
  - Menorrhagia [Recovered/Resolved]
